FAERS Safety Report 8960937 (Version 1)
Quarter: 2012Q4

REPORT INFORMATION
  Report Type: Report from Study
  Country: US (occurrence: US)
  Receive Date: 20121212
  Receipt Date: 20121212
  Transmission Date: 20130627
  Serious: Yes (Other)
  Sender: FDA-Public Use
  Company Number: US-ABBOTT-12P-163-1017492-00

PATIENT
  Age: 50 Year
  Sex: Female

DRUGS (5)
  1. HUMIRA [Suspect]
     Indication: PSORIATIC ARTHROPATHY
  2. HUMIRA [Suspect]
     Indication: RHEUMATOID ARTHRITIS
  3. QVAR [Concomitant]
     Indication: PRODUCT USED FOR UNKNOWN INDICATION
  4. GAMMAGARD [Concomitant]
     Indication: PRODUCT USED FOR UNKNOWN INDICATION
  5. SINGULAIR [Concomitant]
     Indication: PRODUCT USED FOR UNKNOWN INDICATION

REACTIONS (9)
  - Polyp [Recovering/Resolving]
  - Cyst [Recovering/Resolving]
  - Hypogammaglobulinaemia [Recovering/Resolving]
  - Blood immunoglobulin G decreased [Recovering/Resolving]
  - Injection site bruising [Recovering/Resolving]
  - Respiratory tract infection [Recovering/Resolving]
  - Sinusitis [Recovering/Resolving]
  - Bronchiectasis [Unknown]
  - Chest discomfort [Recovering/Resolving]
